FAERS Safety Report 19803885 (Version 1)
Quarter: 2021Q3

REPORT INFORMATION
  Report Type: Spontaneous
  Country: US (occurrence: US)
  Receive Date: 20210903
  Receipt Date: 20210903
  Transmission Date: 20211014
  Serious: No
  Sender: FDA-Public Use
  Company Number: None

PATIENT
  Age: 43 Year
  Sex: Female

DRUGS (1)
  1. COSENTYX [Suspect]
     Active Substance: SECUKINUMAB
     Indication: ANKYLOSING SPONDYLITIS
     Dosage: INJECT 150MG (1 PEN) SUBCUTANEOUSLY IN THE ABDOMEN, THIGH, OR UPPER ARM ONCE A WEEK FOR 5 WEEKS ROTATING
     Route: 058
     Dates: start: 202012

REACTIONS (3)
  - Seizure [None]
  - Aortic aneurysm [None]
  - Hypertension [None]
